FAERS Safety Report 4723183-2 (Version None)
Quarter: 2005Q3

REPORT INFORMATION
  Report Type: 
  Country: None (occurrence: None)
  Receive Date: 20050719
  Receipt Date: 20040820
  Transmission Date: 20060218
  Serious: Yes (Hospitalization)
  Sender: FDA-Public Use
  Company Number: 2004231198US

PATIENT
  Age: 49 Year
  Sex: Male

DRUGS (5)
  1. CELEBREX [Suspect]
     Indication: ARTHRITIS
     Dosage: 200 MG, QD, UNK
     Route: 065
     Dates: start: 19990101
  2. NORVASC [Concomitant]
  3. MAVIK [Concomitant]
  4. PRECOSE [Concomitant]
  5. AVANDIA [Concomitant]

REACTIONS (1)
  - CEREBROVASCULAR ACCIDENT [None]
